FAERS Safety Report 23718136 (Version 1)
Quarter: 2024Q2

REPORT INFORMATION
  Report Type: Spontaneous
  Country: US (occurrence: None)
  Receive Date: 20240405
  Receipt Date: 20240405
  Transmission Date: 20240716
  Serious: No
  Sender: FDA-Public Use
  Company Number: None

PATIENT
  Sex: Female

DRUGS (11)
  1. PIRFENIDONE [Suspect]
     Active Substance: PIRFENIDONE
     Indication: Idiopathic pulmonary fibrosis
     Dosage: FREQUENCY : 3 TIMES A DAY;?
     Route: 048
     Dates: start: 20220607
  2. AZITHROMYCIN [Concomitant]
     Active Substance: AZITHROMYCIN
  3. BOOSTRIX [Concomitant]
  4. CARVEDILOL [Concomitant]
     Active Substance: CARVEDILOL
  5. CARVEDILOL [Concomitant]
     Active Substance: CARVEDILOL
  6. D-2000 MAXIMUM STRENGTH [Concomitant]
  7. ESBRIET [Concomitant]
     Active Substance: PIRFENIDONE
  8. FENOFIBRATE [Concomitant]
     Active Substance: FENOFIBRATE
  9. FLAXSEED [Concomitant]
     Active Substance: FLAX SEED
  10. GABAPENTIN [Concomitant]
     Active Substance: GABAPENTIN
  11. GABAPENTIN [Concomitant]
     Active Substance: GABAPENTIN

REACTIONS (3)
  - Decreased appetite [None]
  - Dyspnoea [None]
  - Intentional dose omission [None]
